FAERS Safety Report 4306124-1 (Version None)
Quarter: 2004Q1

REPORT INFORMATION
  Report Type: 
  Country: None (occurrence: None)
  Receive Date: 20040225
  Receipt Date: 20030224
  Transmission Date: 20041129
  Serious: No
  Sender: FDA-Public Use
  Company Number: US-BRISTOL-MYERS SQUIBB COMPANY-12194403

PATIENT
  Age: 76 Year
  Sex: Male
  Weight: 91 kg

DRUGS (2)
  1. EXCEDRIN ES TABS [Suspect]
     Indication: HEADACHE
     Dosage: DURATION:  10 TO 12 YEARS  NUMBER OF DOSAGES:  1 PER 2 HOURS WHILE AWAKE.
     Route: 048
  2. EXCEDRIN ES TABS [Suspect]
     Indication: ARTHRITIS
     Dosage: DURATION:  10 TO 12 YEARS  NUMBER OF DOSAGES:  1 PER 2 HOURS WHILE AWAKE.
     Route: 048

REACTIONS (3)
  - DRUG ABUSER [None]
  - DRUG EFFECT DECREASED [None]
  - DRUG INEFFECTIVE [None]
